FAERS Safety Report 5748863-1 (Version None)
Quarter: 2008Q2

REPORT INFORMATION
  Report Type: 
  Country: None (occurrence: None)
  Receive Date: 20080522
  Receipt Date: 20080512
  Transmission Date: 20081010
  Serious: No
  Sender: FDA-Public Use
  Company Number: DSU-2008-00691

PATIENT
  Sex: Female

DRUGS (4)
  1. WELCHOL [Suspect]
     Indication: HYPERLIPIDAEMIA
     Dosage: 2500 MG, PER ORAL; 1875 MG (625 MG, TID), PER ORAL
     Dates: start: 20080501, end: 20080501
  2. WELCHOL [Suspect]
     Indication: HYPERLIPIDAEMIA
     Dosage: 2500 MG, PER ORAL; 1875 MG (625 MG, TID), PER ORAL
     Dates: start: 20080501
  3. PROTONIX (PANTOPRAZOLE) (40 MILLIGRAM, TABLET) (PANTROPAZOLE) [Concomitant]
  4. BONIVA (IBANDRONATE SODIUM) (INTRAVENOUS INFUSION) [Concomitant]

REACTIONS (3)
  - ABDOMINAL DISTENSION [None]
  - FLATULENCE [None]
  - OESOPHAGEAL PAIN [None]
